FAERS Safety Report 9413564 (Version 2)
Quarter: 2013Q3

REPORT INFORMATION
  Report Type: Spontaneous
  Country: FR (occurrence: None)
  Receive Date: 20130716
  Receipt Date: 20130722
  Transmission Date: 20140515
  Serious: Yes (Other)
  Sender: FDA-Public Use
  Company Number: 222386

PATIENT
  Age: 19 Year
  Sex: Female
  Weight: 57 kg

DRUGS (6)
  1. INNOHEP [Suspect]
     Indication: PRODUCT USED FOR UNKNOWN INDICATION
     Route: 058
     Dates: start: 20130325, end: 20130413
  2. INNOHEP [Suspect]
     Indication: IMMOBILE
     Route: 058
     Dates: start: 20130325, end: 20130413
  3. IMETH [Suspect]
     Indication: ANKYLOSING SPONDYLITIS
     Dosage: 0.1429 DF (1 DF, 1 IN 1 WK), ORAL
     Route: 048
     Dates: start: 20120601, end: 20130402
  4. REMICADE [Suspect]
     Indication: ANKYLOSING SPONDYLITIS
     Dosage: 0.0714 DF (3 DF, 1 IN 6 WK), INTRAVENOUS
     Route: 042
     Dates: start: 20120701, end: 20130218
  5. PARACETAMOL (PARACETAMOL) [Concomitant]
  6. SPECIAFOLDINE (FOLIC ACID) (5MG TABLET) [Concomitant]

REACTIONS (3)
  - Hepatocellular injury [None]
  - Skeletal injury [None]
  - Immobile [None]
